FAERS Safety Report 6872853-9 (Version None)
Quarter: 2010Q3

REPORT INFORMATION
  Report Type: 
  Country: None (occurrence: None)
  Receive Date: 20100723
  Receipt Date: 20081105
  Transmission Date: 20110219
  Serious: No
  Sender: FDA-Public Use
  Company Number: US-PFIZER INC-2008097808

PATIENT
  Sex: Female
  Weight: 52.3 kg

DRUGS (10)
  1. CHANTIX [Suspect]
     Indication: SMOKING CESSATION THERAPY
     Dates: start: 20080901, end: 20081001
  2. SYNTHROID [Concomitant]
  3. SIMVASTATIN [Concomitant]
  4. SOMA [Concomitant]
  5. OXYCODONE [Concomitant]
  6. OXYCONTIN [Concomitant]
  7. KLONOPIN [Concomitant]
  8. ALL OTHER THERAPEUTIC PRODUCTS [Concomitant]
  9. CALTRATE [Concomitant]
  10. MULTIPLE VITAMINS [Concomitant]

REACTIONS (3)
  - ALOPECIA [None]
  - INSOMNIA [None]
  - NIGHTMARE [None]
